FAERS Safety Report 7326383-0 (Version None)
Quarter: 2011Q1

REPORT INFORMATION
  Report Type: 
  Country: None (occurrence: None)
  Receive Date: 20110222
  Receipt Date: 20110204
  Transmission Date: 20110831
  Serious: Yes (Other)
  Sender: FDA-Public Use
  Company Number: ACO_21717_2011

PATIENT
  Age: 53 Year
  Sex: Female
  Weight: 53.1 kg

DRUGS (4)
  1. AMPYRA [Suspect]
     Indication: GAIT DISTURBANCE
     Dosage: 10 MG, Q 12 HRS, ORAL
     Route: 048
     Dates: start: 20100329, end: 20100101
  2. COPAXONE [Concomitant]
  3. BONIVA [Concomitant]
  4. BACLOFEN [Concomitant]

REACTIONS (8)
  - TREMOR [None]
  - CONVULSION [None]
  - ACCIDENTAL OVERDOSE [None]
  - GLOSSODYNIA [None]
  - CHILLS [None]
  - MUSCLE SPASMS [None]
  - DRUG DOSE OMISSION [None]
  - DIZZINESS [None]
